FAERS Safety Report 8729873 (Version 2)
Quarter: 2012Q4

REPORT INFORMATION
  Report Type: 
  Country: US (occurrence: US)
  Receive Date: 20120817
  Receipt Date: 20120913
  Transmission Date: 20130627
  Serious: Yes (Other)
  Sender: FDA-Public Use
  Company Number: US-GLAXOSMITHKLINE-A0988958A

PATIENT
  Age: 60 Year
  Sex: Male

DRUGS (2)
  1. ADVAIR [Suspect]
     Indication: ASTHMA
     Dosage: 1PUFF Every 3 days
     Route: 055
     Dates: start: 2004
  2. FORADIL [Concomitant]

REACTIONS (3)
  - Hypoxia [Recovering/Resolving]
  - Drug ineffective [Unknown]
  - Product quality issue [Unknown]
